FAERS Safety Report 10084827 (Version 1)
Quarter: 2014Q2

REPORT INFORMATION
  Report Type: Spontaneous
  Country: US (occurrence: None)
  Receive Date: 20140404
  Receipt Date: 20140404
  Transmission Date: 20141212
  Serious: Yes (Other)
  Sender: FDA-Public Use
  Company Number: 1347427

PATIENT
  Sex: Female

DRUGS (6)
  1. TAXOTERE (DOCETAXEL) [Concomitant]
     Indication: BREAST CANCER METASTATIC
  2. LASIX (FUROSEMIDE) [Concomitant]
  3. PROZAC (FLUOXETIN HYDROCHLORIDE) [Concomitant]
  4. LIPITOR (ATORVASTATIN CALCIUM) [Concomitant]
  5. PERJETA [Suspect]
     Indication: BREAST CANCER METASTATIC
     Dates: start: 20130812
  6. HERCEPTIN [Suspect]
     Indication: BREAST CANCER METASTATIC
     Dates: start: 20130812

REACTIONS (1)
  - Pleural effusion [None]
